FAERS Safety Report 19661129 (Version 2)
Quarter: 2021Q3

REPORT INFORMATION
  Report Type: Spontaneous
  Country: CO (occurrence: CO)
  Receive Date: 20210805
  Receipt Date: 20210811
  Transmission Date: 20211014
  Serious: Yes (Disabling, Other)
  Sender: FDA-Public Use
  Company Number: CO-ROCHE-2882000

PATIENT
  Age: 30 Year
  Sex: Male
  Weight: 52 kg

DRUGS (2)
  1. HEMLIBRA [Suspect]
     Active Substance: EMICIZUMAB-KXWH
     Indication: FACTOR VIII DEFICIENCY
     Route: 058
     Dates: start: 202101, end: 20210729
  2. NOVOSEVEN [Concomitant]
     Active Substance: COAGULATION FACTOR VIIA RECOMBINANT HUMAN
     Indication: CHOLECYSTECTOMY
     Dates: start: 20210728

REACTIONS (9)
  - Cognitive disorder [Not Recovered/Not Resolved]
  - Abnormal behaviour [Unknown]
  - Brain oedema [Unknown]
  - Dyskinesia [Unknown]
  - Infarction [Unknown]
  - Hemiparesis [Not Recovered/Not Resolved]
  - Facial paralysis [Unknown]
  - Seizure [Unknown]
  - Cerebral infarction [Unknown]

NARRATIVE: CASE EVENT DATE: 20210729
